FAERS Safety Report 9149413 (Version 2)
Quarter: 2014Q3

REPORT INFORMATION
  Report Type: Report from Study
  Country: US (occurrence: US)
  Receive Date: 20130308
  Receipt Date: 20140805
  Transmission Date: 20150326
  Serious: Yes (Hospitalization)
  Sender: FDA-Public Use
  Company Number: PHHO2013US003391

PATIENT
  Age: 65 Year
  Sex: Male
  Weight: 132.2 kg

DRUGS (7)
  1. SIMVASTATIN. [Concomitant]
     Active Substance: SIMVASTATIN
     Indication: HYPERLIPIDAEMIA
     Dosage: 40 MG, QHS
     Dates: start: 20100903
  2. ENALAPRIL [Suspect]
     Active Substance: ENALAPRIL
     Indication: CARDIAC FAILURE CHRONIC
     Dosage: 10 MG, BID
     Route: 048
     Dates: start: 20110222, end: 20130228
  3. METOLAZONE TABLETS USP [Suspect]
     Active Substance: METOLAZONE
     Indication: FLUID RETENTION
     Dosage: 10 MG, TID
     Dates: start: 20130219
  4. INSULIN [Concomitant]
     Active Substance: INSULIN NOS
     Indication: DIABETES MELLITUS
     Dosage: 42 U, BID
     Dates: start: 20091130
  5. CARVEDILOL. [Concomitant]
     Active Substance: CARVEDILOL
     Indication: CARDIAC FAILURE CHRONIC
     Dosage: 50 MG, BID
     Dates: start: 20101019
  6. DOXAZOSIN [Concomitant]
     Active Substance: DOXAZOSIN\DOXAZOSIN MESYLATE
     Indication: HYPERTENSION
     Dosage: 8 MG, BID
     Dates: start: 20121030
  7. FUROSEMIDE. [Suspect]
     Active Substance: FUROSEMIDE
     Dosage: 40 MG, QID
     Dates: start: 20130219, end: 20130227

REACTIONS (6)
  - Disease progression [None]
  - Diabetic nephropathy [None]
  - Dehydration [None]
  - Nephrolithiasis [None]
  - Renal failure acute [Recovered/Resolved with Sequelae]
  - Renal failure acute [None]

NARRATIVE: CASE EVENT DATE: 20130228
